FAERS Safety Report 8135093-1 (Version None)
Quarter: 2012Q1

REPORT INFORMATION
  Report Type: 
  Country: None (occurrence: None)
  Receive Date: 20120214
  Receipt Date: 20120208
  Transmission Date: 20120608
  Serious: Yes (Other)
  Sender: FDA-Public Use
  Company Number: US-PFIZER INC-2011302370

PATIENT
  Sex: Female
  Weight: 56.689 kg

DRUGS (5)
  1. VISTARIL [Suspect]
     Dosage: UNK
  2. LEVOXYL [Concomitant]
     Indication: THYROID DISORDER
     Dosage: UNK
  3. LYRICA [Suspect]
     Indication: NERVE INJURY
     Dosage: 75 MG, 2X/DAY
     Route: 048
     Dates: start: 20020801
  4. PRAVASTATIN [Concomitant]
     Indication: BLOOD CHOLESTEROL ABNORMAL
     Dosage: UNK
  5. PAXIL [Concomitant]
     Dosage: UNK

REACTIONS (12)
  - MENTAL IMPAIRMENT [None]
  - BURNING SENSATION [None]
  - SUICIDE ATTEMPT [None]
  - IMPAIRED WORK ABILITY [None]
  - FEELING ABNORMAL [None]
  - MOBILITY DECREASED [None]
  - PANIC ATTACK [None]
  - BONE PAIN [None]
  - PAIN IN EXTREMITY [None]
  - INSOMNIA [None]
  - FEAR [None]
  - GAIT DISTURBANCE [None]
